FAERS Safety Report 9546808 (Version 1)
Quarter: 2013Q3

REPORT INFORMATION
  Report Type: Spontaneous
  Country: US (occurrence: US)
  Receive Date: 20130924
  Receipt Date: 20130924
  Transmission Date: 20140515
  Serious: No
  Sender: FDA-Public Use
  Company Number: US-009507513-1309USA005006

PATIENT
  Age: 18 Year
  Sex: Female
  Weight: 84.35 kg

DRUGS (2)
  1. NEXPLANON [Suspect]
     Indication: CONTRACEPTION
     Dosage: 1 ROD UP TO 3 YEARS
     Route: 059
     Dates: start: 20130222
  2. ADVAIR [Concomitant]

REACTIONS (4)
  - Insomnia [Unknown]
  - Haemorrhage [Unknown]
  - Paraesthesia [Unknown]
  - Headache [Unknown]
